FAERS Safety Report 17068327 (Version 2)
Quarter: 2019Q4

REPORT INFORMATION
  Report Type: Report from Study
  Country: US (occurrence: US)
  Receive Date: 20191123
  Receipt Date: 20191128
  Transmission Date: 20200122
  Serious: No
  Sender: FDA-Public Use
  Company Number: US-IPSEN BIOPHARMACEUTICALS, INC.-2019-21643

PATIENT

DRUGS (1)
  1. DYSPORT [Suspect]
     Active Substance: ABOBOTULINUMTOXINA
     Indication: MUSCLE SPASTICITY
     Dosage: 65 UNITS NOT REPORTED (FINGER FLEXORS: 20.00, WRIST FLEXORS: 20.00, ELBOW FLEXORS: 5.00, SHOULDER MU
     Route: 065

REACTIONS (2)
  - Therapeutic response shortened [Unknown]
  - Muscle spasticity [Unknown]
